FAERS Safety Report 16025005 (Version 1)
Quarter: 2019Q1

REPORT INFORMATION
  Report Type: Spontaneous
  Country: US (occurrence: US)
  Receive Date: 20190301
  Receipt Date: 20190301
  Transmission Date: 20190418
  Serious: No
  Sender: FDA-Public Use
  Company Number: US-SA-2019SA055480

PATIENT
  Age: 63 Year
  Sex: Female

DRUGS (5)
  1. ARAVA [Suspect]
     Active Substance: LEFLUNOMIDE
     Dosage: UNK UNK, UNK
     Route: 065
  2. FOLIC ACID. [Concomitant]
     Active Substance: FOLIC ACID
     Dosage: UNK UNK, UNK
     Route: 065
  3. HYDROXYCHLOROQUINE SULFATE. [Suspect]
     Active Substance: HYDROXYCHLOROQUINE SULFATE
     Dosage: UNK UNK, UNK
     Route: 065
  4. XELJANZ [Suspect]
     Active Substance: TOFACITINIB CITRATE
     Indication: ARTHRALGIA
     Dosage: 5 MG, BID
     Route: 065
     Dates: start: 20170830
  5. XELJANZ [Suspect]
     Active Substance: TOFACITINIB CITRATE
     Indication: SWELLING

REACTIONS (2)
  - Drug ineffective [Unknown]
  - Extra dose administered [Unknown]

NARRATIVE: CASE EVENT DATE: 20171110
